FAERS Safety Report 10402574 (Version 2)
Quarter: 2014Q4

REPORT INFORMATION
  Report Type: Report from Study
  Country: DE (occurrence: TR)
  Receive Date: 20140822
  Receipt Date: 20141229
  Transmission Date: 20150528
  Serious: Yes (Death, Hospitalization)
  Sender: FDA-Public Use
  Company Number: DE-ACTELION-A-US2014-104200

PATIENT
  Age: 71 Year
  Sex: Female
  Weight: 48 kg

DRUGS (1)
  1. VENTAVIS [Suspect]
     Active Substance: ILOPROST
     Indication: PULMONARY HYPERTENSION
     Dosage: 6 INHALATIONS DAILY
     Route: 055
     Dates: start: 20131130, end: 20140810

REACTIONS (3)
  - Respiratory distress [Unknown]
  - Respiratory arrest [Fatal]
  - Influenza [Unknown]

NARRATIVE: CASE EVENT DATE: 20140810
